FAERS Safety Report 25017607 (Version 4)
Quarter: 2025Q4

REPORT INFORMATION
  Report Type: Spontaneous
  Country: JP (occurrence: JP)
  Receive Date: 20250227
  Receipt Date: 20251229
  Transmission Date: 20260117
  Serious: Yes (Hospitalization, Other)
  Sender: BRISTOL-MYERS SQUIBB COMPANY
  Company Number: JP-BRISTOL-MYERS SQUIBB COMPANY-2025-028545

PATIENT
  Sex: Female

DRUGS (1)
  1. BREYANZI [Suspect]
     Active Substance: LISOCABTAGENE MARALEUCEL
     Indication: Diffuse large B-cell lymphoma
     Dosage: DOSE : UNAVAILABLE;     FREQ : UNAVAILABLE
     Route: 042
     Dates: start: 202204, end: 202204

REACTIONS (6)
  - Small intestine ulcer [Recovering/Resolving]
  - Ileal ulcer [Recovering/Resolving]
  - Gastric ulcer [Not Recovered/Not Resolved]
  - Malignant urinary tract neoplasm [Unknown]
  - Genital neoplasm malignant female [Unknown]
  - Good syndrome [Unknown]

NARRATIVE: CASE EVENT DATE: 20231001
